FAERS Safety Report 6268371-1 (Version None)
Quarter: 2009Q3

REPORT INFORMATION
  Report Type: 
  Country: None (occurrence: None)
  Receive Date: 20090715
  Receipt Date: 20090708
  Transmission Date: 20100115
  Serious: Yes (Hospitalization)
  Sender: FDA-Public Use
  Company Number: FR-B.I. PHARMACEUTICALS,INC./RIDGEFIELD-2009-FF-00493FF

PATIENT
  Sex: Male

DRUGS (7)
  1. SPIRIVA [Suspect]
     Dosage: 18 MCG
     Route: 055
     Dates: end: 20090530
  2. PREVISCAN [Concomitant]
     Dosage: 10 MG
     Route: 048
     Dates: end: 20090602
  3. DIGOXIN [Concomitant]
     Route: 048
     Dates: end: 20090530
  4. INIPOMP [Concomitant]
     Dosage: 20 MG
     Route: 048
     Dates: end: 20090530
  5. SOLUPRED [Concomitant]
     Dosage: 10 MG
     Route: 048
     Dates: end: 20090530
  6. SINGULAIR [Concomitant]
     Route: 048
  7. SERETIDE [Concomitant]
     Dosage: 250/25 MCG X 4 DAILY
     Route: 055
     Dates: end: 20090530

REACTIONS (1)
  - PURPURA [None]
